FAERS Safety Report 6092675-9 (Version None)
Quarter: 2009Q1

REPORT INFORMATION
  Report Type: 
  Country: None (occurrence: None)
  Receive Date: 20090223
  Receipt Date: 20090223
  Transmission Date: 20090719
  Serious: Yes (Hospitalization)
  Sender: FDA-Public Use
  Company Number: None

PATIENT
  Sex: Female
  Weight: 54.4316 kg

DRUGS (1)
  1. MACRODANTIN [Suspect]
     Indication: URINARY TRACT INFECTION
     Dosage: PO
     Route: 048
     Dates: start: 20090211, end: 20090213

REACTIONS (7)
  - DEHYDRATION [None]
  - DISORIENTATION [None]
  - DRUG ERUPTION [None]
  - HYPOTHERMIA [None]
  - PYREXIA [None]
  - RENAL FAILURE ACUTE [None]
  - RHABDOMYOLYSIS [None]
